FAERS Safety Report 16995495 (Version 4)
Quarter: 2020Q2

REPORT INFORMATION
  Report Type: Spontaneous
  Country: GR (occurrence: GR)
  Receive Date: 20191105
  Receipt Date: 20200501
  Transmission Date: 20200713
  Serious: Yes (Life-Threatening, Hospitalization, Other)
  Sender: FDA-Public Use
  Company Number: GR-MYLANLABS-2019M1104213

PATIENT
  Age: 92 Year
  Sex: Female

DRUGS (7)
  1. MEMANTINE MYLAN [Interacting]
     Active Substance: MEMANTINE
     Indication: NERVOUS SYSTEM DISORDER
     Dosage: 10 MILLIGRAM, QD
     Route: 048
  2. FLECAINIDE [Interacting]
     Active Substance: FLECAINIDE
     Indication: ATRIAL FIBRILLATION
     Dosage: 100 MILLIGRAM, BID
  3. FLECAINIDE [Interacting]
     Active Substance: FLECAINIDE
     Dosage: 200 MILLIGRAM, QD (200 MILLIGRAM DAILY; 200MG/ DAILY, EVERY 12 HOURS IN TWO DOSES, OF 100MG EACH ONE
     Route: 065
  4. FLECAINIDE [Interacting]
     Active Substance: FLECAINIDE
     Indication: CARDIAC DISORDER
     Dosage: 200 MG, Q12H (2 DOSES OF 100 MG)
     Route: 042
  5. FLECAINIDE [Interacting]
     Active Substance: FLECAINIDE
     Indication: ATRIAL FIBRILLATION
  6. DOPAMINE [Concomitant]
     Active Substance: DOPAMINE HYDROCHLORIDE
     Dosage: UNK
  7. QUETIAPINA MYLAN [Suspect]
     Active Substance: QUETIAPINE
     Indication: NERVOUS SYSTEM DISORDER
     Dosage: 400 MILLIGRAM, QD
     Route: 048

REACTIONS (15)
  - Vomiting [Recovered/Resolved]
  - Acute kidney injury [Recovered/Resolved]
  - Stupor [Recovered/Resolved]
  - Blood pressure decreased [Recovered/Resolved]
  - Diarrhoea [Recovered/Resolved]
  - Blood urea increased [Recovering/Resolving]
  - Electrocardiogram QT prolonged [Recovered/Resolved]
  - Depressed level of consciousness [Recovered/Resolved]
  - Toxicity to various agents [Recovered/Resolved]
  - Electrocardiogram QRS complex prolonged [Recovered/Resolved]
  - Oliguria [Recovered/Resolved]
  - Blood creatinine increased [Recovering/Resolving]
  - Device malfunction [Recovered/Resolved]
  - Metabolic acidosis [Recovered/Resolved]
  - Drug interaction [Unknown]
